FAERS Safety Report 18252296 (Version 1)
Quarter: 2020Q3

REPORT INFORMATION
  Report Type: Spontaneous
  Country: US (occurrence: US)
  Receive Date: 20200910
  Receipt Date: 20200910
  Transmission Date: 20201103
  Serious: No
  Sender: FDA-Public Use
  Company Number: US-FARMAPROD-202006-0760

PATIENT
  Age: 72 Year
  Sex: Female

DRUGS (13)
  1. PROCARDIA XL [Concomitant]
     Active Substance: NIFEDIPINE
  2. ASPIRINE [Concomitant]
     Active Substance: ASPIRIN
  3. CALCIUM MAGNESIUM + D [Concomitant]
  4. FUROSEMIDE. [Concomitant]
     Active Substance: FUROSEMIDE
  5. LEVOTHYROXINE SODIUM. [Concomitant]
     Active Substance: LEVOTHYROXINE SODIUM
  6. MULTIVITAMINS WITH IRON [Concomitant]
     Active Substance: IRON\VITAMINS
  7. FERROUS SULFATE. [Concomitant]
     Active Substance: FERROUS SULFATE
  8. BIOTIN [Concomitant]
     Active Substance: BIOTIN
  9. TYLENOL ARTHRITIS PAIN [Concomitant]
     Active Substance: ACETAMINOPHEN
  10. OXERVATE [Suspect]
     Active Substance: CENEGERMIN-BKBJ
     Indication: PRODUCT USED FOR UNKNOWN INDICATION
     Route: 047
     Dates: start: 20200520
  11. FISH OIL [Concomitant]
     Active Substance: FISH OIL
  12. VITAMINE C [Concomitant]
     Active Substance: ASCORBIC ACID
  13. FENOFIBRATE. [Concomitant]
     Active Substance: FENOFIBRATE

REACTIONS (2)
  - Product administration error [Unknown]
  - Eye irritation [Unknown]

NARRATIVE: CASE EVENT DATE: 20200528
